FAERS Safety Report 5812134-5 (Version None)
Quarter: 2008Q3

REPORT INFORMATION
  Report Type: 
  Country: None (occurrence: None)
  Receive Date: 20080714
  Receipt Date: 20080627
  Transmission Date: 20090109
  Serious: Yes (Other)
  Sender: FDA-Public Use
  Company Number: 2008JP003085

PATIENT
  Age: 69 Year
  Sex: Male
  Weight: 56 kg

DRUGS (11)
  1. TACROLIMUS [Suspect]
     Indication: MYASTHENIA GRAVIS
     Dosage: 2 MG, D, ORAL, 3 MG, D, ORAL, 4 MG, D, ORAL
     Route: 048
     Dates: start: 20070810, end: 20070816
  2. TACROLIMUS [Suspect]
     Indication: MYASTHENIA GRAVIS
     Dosage: 2 MG, D, ORAL, 3 MG, D, ORAL, 4 MG, D, ORAL
     Route: 048
     Dates: start: 20070817, end: 20070820
  3. TACROLIMUS [Suspect]
     Indication: MYASTHENIA GRAVIS
     Dosage: 2 MG, D, ORAL, 3 MG, D, ORAL, 4 MG, D, ORAL
     Route: 048
     Dates: start: 20070821, end: 20070916
  4. PREDONINE (PREDNISOLONE) [Concomitant]
  5. MYTELASE [Concomitant]
  6. CANDESARTAN CILEXETIL [Concomitant]
  7. AMARYL [Concomitant]
  8. BEZATOL (BEZAFIBRATE) [Concomitant]
  9. LOCHOL (LOVASTATIN) [Concomitant]
  10. BASEN (VOGLIBOSE) [Concomitant]
  11. STOGAR (LAFUTIDINE) [Concomitant]

REACTIONS (2)
  - MITRAL VALVE INCOMPETENCE [None]
  - VENTRICULAR EXTRASYSTOLES [None]
